FAERS Safety Report 4455872-1 (Version None)
Quarter: 2004Q3

REPORT INFORMATION
  Report Type: 
  Country: None (occurrence: None)
  Receive Date: 20040922
  Receipt Date: 20040911
  Transmission Date: 20050211
  Serious: Yes (Hospitalization)
  Sender: FDA-Public Use
  Company Number: FR-MERCK-0409FRA00043

PATIENT
  Age: 68 Year
  Sex: Female

DRUGS (4)
  1. DICLOFENAC SODIUM [Concomitant]
     Indication: OSTEOARTHRITIS
     Route: 048
  2. FLUCONAZOLE [Concomitant]
     Indication: GASTROINTESTINAL CANDIDIASIS
     Route: 048
  3. LANSOPRAZOLE [Concomitant]
     Indication: GASTRIC ULCER
     Route: 048
  4. VIOXX [Suspect]
     Indication: OSTEOARTHRITIS
     Route: 048
     Dates: start: 20040701, end: 20040701

REACTIONS (2)
  - ACCIDENTAL OVERDOSE [None]
  - DIARRHOEA [None]
